FAERS Safety Report 4322953-2 (Version None)
Quarter: 2004Q1

REPORT INFORMATION
  Report Type: 
  Country: None (occurrence: None)
  Receive Date: 20040322
  Receipt Date: 20040315
  Transmission Date: 20041129
  Serious: Yes (Disabling, Other)
  Sender: FDA-Public Use
  Company Number: 2003-02-0438

PATIENT
  Age: 51 Year
  Sex: Male
  Weight: 92.5338 kg

DRUGS (2)
  1. PEG-INTRON [Suspect]
     Indication: HEPATITIS C
     Dosage: 150 MCG VIAL SUBCUTANEOUS
     Route: 058
     Dates: start: 20020201, end: 20030201
  2. REBETOL [Suspect]
     Indication: HEPATITIS C
     Dosage: 1200 MG QD ORAL
     Route: 048
     Dates: start: 20020201, end: 20030201

REACTIONS (7)
  - AGGRESSION [None]
  - HEPATOCELLULAR DAMAGE [None]
  - IMPAIRED WORK ABILITY [None]
  - MEMORY IMPAIRMENT [None]
  - MOOD SWINGS [None]
  - RADIOTHERAPY TO THYROID [None]
  - VIRAL LOAD INCREASED [None]
